FAERS Safety Report 8208659-8 (Version None)
Quarter: 2012Q1

REPORT INFORMATION
  Report Type: 
  Country: None (occurrence: None)
  Receive Date: 20120314
  Receipt Date: 20120305
  Transmission Date: 20120608
  Serious: No
  Sender: FDA-Public Use
  Company Number: US-BAYER-2012-023036

PATIENT
  Age: 85 Year
  Sex: Male
  Weight: 77 kg

DRUGS (4)
  1. ASPIRIN [Concomitant]
     Indication: ISCHAEMIC HEART DISEASE PROPHYLAXIS
  2. ATENOLOL [Concomitant]
  3. ALEVE (CAPLET) [Suspect]
     Indication: PAIN
     Dosage: 1 DF, BID
     Route: 048
     Dates: start: 20120201
  4. LISINOPRIL [Concomitant]

REACTIONS (1)
  - PAIN [None]
